FAERS Safety Report 5134134-3 (Version None)
Quarter: 2006Q4

REPORT INFORMATION
  Report Type: 
  Country: None (occurrence: None)
  Receive Date: 20061024
  Receipt Date: 20061013
  Transmission Date: 20070319
  Serious: Yes (Hospitalization)
  Sender: FDA-Public Use
  Company Number: CG-MERCK-0610USA11119

PATIENT
  Age: 18 Year
  Sex: Male

DRUGS (1)
  1. STROMECTOL [Suspect]
     Route: 048
     Dates: start: 20060227, end: 20060227

REACTIONS (4)
  - ADVERSE EVENT [None]
  - HEADACHE [None]
  - OCULAR HYPERAEMIA [None]
  - PRURITUS [None]
